FAERS Safety Report 24127255 (Version 1)
Quarter: 2024Q3

REPORT INFORMATION
  Report Type: Spontaneous
  Country: IT (occurrence: IT)
  Receive Date: 20240723
  Receipt Date: 20240723
  Transmission Date: 20241017
  Serious: Yes (Life-Threatening)
  Sender: INTERCHEM
  Company Number: IT-HQ SPECIALTY-IT-2024INT000071

PATIENT
  Age: 18 Day
  Sex: Male
  Weight: 1 kg

DRUGS (1)
  1. DEXMEDETOMIDINE HYDROCHLORIDE [Suspect]
     Active Substance: DEXMEDETOMIDINE HYDROCHLORIDE
     Indication: Product used for unknown indication
     Dosage: 2 MILLILITERS; SINGLE ADMINISTRATION WITH ORAL OVERDOSE
     Route: 048
     Dates: start: 20240306, end: 20240306

REACTIONS (10)
  - Hypotonia [Recovered/Resolved]
  - Altered state of consciousness [Recovered/Resolved]
  - Blood lactic acid increased [Recovered/Resolved]
  - Accidental overdose [Unknown]
  - Wrong product administered [Unknown]
  - Product administered to patient of inappropriate age [Unknown]
  - Incorrect route of product administration [Unknown]
  - Apnoea [Recovered/Resolved]
  - Dyspnoea [Recovered/Resolved]
  - Hyperglycaemia [Recovered/Resolved]

NARRATIVE: CASE EVENT DATE: 20240306
